FAERS Safety Report 9979495 (Version 1)
Quarter: 2014Q1

REPORT INFORMATION
  Report Type: Report from Study
  Country: US (occurrence: US)
  Receive Date: 20140306
  Receipt Date: 20140306
  Transmission Date: 20141002
  Serious: No
  Sender: FDA-Public Use
  Company Number: US-ABBVIE-13P-163-1172850-00

PATIENT
  Age: 46 Year
  Sex: Male
  Weight: 94.43 kg

DRUGS (4)
  1. HUMIRA [Suspect]
     Indication: PSORIATIC ARTHROPATHY
     Dates: start: 201307
  2. HUMIRA [Suspect]
     Indication: PSORIASIS
  3. LISINOPRIL [Concomitant]
     Indication: HYPERTENSION
     Route: 048
  4. FOLIC ACID [Concomitant]
     Indication: PRODUCT USED FOR UNKNOWN INDICATION

REACTIONS (3)
  - Pain in extremity [Not Recovered/Not Resolved]
  - Psoriatic arthropathy [Recovered/Resolved]
  - Arthralgia [Not Recovered/Not Resolved]
